FAERS Safety Report 7183765-8 (Version None)
Quarter: 2010Q4

REPORT INFORMATION
  Report Type: 
  Country: None (occurrence: None)
  Receive Date: 20101210
  Receipt Date: 20101124
  Transmission Date: 20110411
  Serious: Yes (Death)
  Sender: FDA-Public Use
  Company Number: 2010005126

PATIENT
  Age: 49 Year
  Sex: Male

DRUGS (7)
  1. ERLOTINIB HYDROCHLORIDE [Suspect]
     Indication: NON-SMALL CELL LUNG CANCER
     Dosage: (150 MG,QD),ORAL
     Route: 048
     Dates: start: 20080922, end: 20081028
  2. CODEINE (CODEINE) [Concomitant]
  3. MYPOL [Concomitant]
  4. MUCOSTA (REBAMIPIDE) [Concomitant]
  5. MEGACE [Concomitant]
  6. GANATON (ITOPRIDE HYDROCHLORIDE) [Concomitant]
  7. ACETAMINOPHEN [Concomitant]

REACTIONS (1)
  - PNEUMONIA [None]
